FAERS Safety Report 10086896 (Version 2)
Quarter: 2014Q2

REPORT INFORMATION
  Report Type: Spontaneous
  Country: US (occurrence: US)
  Receive Date: 20140418
  Receipt Date: 20140505
  Transmission Date: 20141212
  Serious: Yes (Other)
  Sender: FDA-Public Use
  Company Number: US-JNJFOC-20140410541

PATIENT
  Sex: Female
  Weight: 91 kg

DRUGS (4)
  1. REMICADE [Suspect]
     Indication: PSORIATIC ARTHROPATHY
     Route: 042
     Dates: start: 20130502
  2. REMICADE [Suspect]
     Indication: PSORIASIS
     Route: 042
     Dates: start: 20130502
  3. METHOTREXATE [Suspect]
     Indication: PSORIATIC ARTHROPATHY
     Dosage: SINCE APPROXIMATELY 15 YEARS, VARIED 7.5 TO 12.5 MG
     Route: 065
  4. METHOTREXATE [Suspect]
     Indication: PSORIASIS
     Dosage: SINCE APPROXIMATELY 15 YEARS, VARIED 7.5 TO 12.5 MG
     Route: 065

REACTIONS (1)
  - Hepatic cirrhosis [Unknown]
